FAERS Safety Report 23559565 (Version 1)
Quarter: 2024Q1

REPORT INFORMATION
  Report Type: Spontaneous
  Country: KR (occurrence: KR)
  Receive Date: 20240223
  Receipt Date: 20240223
  Transmission Date: 20240410
  Serious: Yes (Death)
  Sender: FDA-Public Use
  Company Number: KR-PFIZER INC-PV202400024609

PATIENT
  Age: 69 Year
  Sex: Female

DRUGS (7)
  1. IBRANCE [Suspect]
     Active Substance: PALBOCICLIB
     Dosage: 125 MG, CYCLIC ONCE DAILY PER 21DAYS
     Route: 048
     Dates: start: 20231206
  2. LIPITOR [Concomitant]
     Active Substance: ATORVASTATIN CALCIUM
     Dosage: 10 MG, 1X/DAY
     Dates: start: 20231205, end: 20231206
  3. NAXEN-F [Concomitant]
     Dosage: 0.5 G, TWICE
     Dates: start: 20231206
  4. NAXEN-F [Concomitant]
     Dosage: 0.5 G, 1X/DAY
     Dates: start: 20231207
  5. DULACKHAN [Concomitant]
     Dosage: FREQUENCY:300, 1X/DAY
     Dates: start: 20231208
  6. ALMAGEL-F [Concomitant]
     Dosage: 1.5G/15ML, TWICE
     Dates: start: 20231211, end: 20240122
  7. MUCOSTA SR [Concomitant]
     Dosage: 150 MG, TWICE
     Dates: start: 20231211, end: 20240212

REACTIONS (1)
  - Bacteraemia [Fatal]
